FAERS Safety Report 16425758 (Version 4)
Quarter: 2019Q3

REPORT INFORMATION
  Report Type: Spontaneous
  Country: US (occurrence: US)
  Receive Date: 20190613
  Receipt Date: 20190822
  Transmission Date: 20191004
  Serious: Yes (Other)
  Sender: FDA-Public Use
  Company Number: US-PFIZER INC-2019251869

PATIENT
  Age: 71 Year
  Sex: Male

DRUGS (1)
  1. VYNDAQEL [Suspect]
     Active Substance: TAFAMIDIS MEGLUMINE
     Indication: CARDIAC AMYLOIDOSIS
     Dosage: UNK
     Dates: start: 20190116

REACTIONS (7)
  - Neuropathy peripheral [Unknown]
  - Dry mouth [Unknown]
  - Dyspepsia [Unknown]
  - Insomnia [Unknown]
  - Fluid retention [Unknown]
  - Tenosynovitis stenosans [Unknown]
  - Early satiety [Unknown]
